FAERS Safety Report 14889401 (Version 2)
Quarter: 2018Q2

REPORT INFORMATION
  Report Type: Spontaneous
  Country: US (occurrence: US)
  Receive Date: 20180514
  Receipt Date: 20180523
  Transmission Date: 20180711
  Serious: Yes (Hospitalization)
  Sender: FDA-Public Use
  Company Number: US-CONCORDIA PHARMACEUTICALS INC.-GSH201805-001551

PATIENT
  Age: 26 Year
  Sex: Female

DRUGS (1)
  1. PHENOXYBENZAMINE [Suspect]
     Active Substance: PHENOXYBENZAMINE
     Indication: PHAEOCHROMOCYTOMA
     Route: 048

REACTIONS (2)
  - Hypotension [Unknown]
  - Dizziness [Unknown]
